FAERS Safety Report 9689063 (Version 5)
Quarter: 2014Q1

REPORT INFORMATION
  Report Type: Spontaneous
  Country: US (occurrence: US)
  Receive Date: 20131114
  Receipt Date: 20140320
  Transmission Date: 20141002
  Serious: Yes (Hospitalization)
  Sender: FDA-Public Use
  Company Number: US-PFIZER INC-2013324219

PATIENT
  Age: 86 Year
  Sex: Male

DRUGS (5)
  1. NORVASC [Suspect]
     Dosage: UNK
  2. XALATAN [Suspect]
     Indication: GLAUCOMA
     Dosage: 1 GTT, DAILY (AT BEDTIME) QHS
     Route: 061
     Dates: start: 20100203
  3. METFORMIN [Concomitant]
     Dosage: UNK
  4. VITAMIN E [Concomitant]
     Dosage: UNK
  5. LOSARTAN [Concomitant]
     Dosage: UNK

REACTIONS (2)
  - Road traffic accident [Unknown]
  - Pain [Unknown]
